FAERS Safety Report 19001686 (Version 2)
Quarter: 2021Q3

REPORT INFORMATION
  Report Type: Spontaneous
  Country: US (occurrence: US)
  Receive Date: 20210312
  Receipt Date: 20210908
  Transmission Date: 20211014
  Serious: No
  Sender: FDA-Public Use
  Company Number: US-FARMAPROD-202011-1606

PATIENT
  Sex: Female

DRUGS (7)
  1. OXERVATE [Suspect]
     Active Substance: CENEGERMIN-BKBJ
     Indication: NEUROTROPHIC KERATOPATHY
     Route: 047
     Dates: start: 20201104
  2. TAURINE [Concomitant]
     Active Substance: TAURINE
  3. OMEGA [Concomitant]
  4. OMEGA 3 [Concomitant]
     Active Substance: OMEGA-3 FATTY ACIDS
     Dosage: 500?1000 MG
  5. METFORMIN [Concomitant]
     Active Substance: METFORMIN HYDROCHLORIDE
     Dosage: EXTENDED GASTRIC RELEASE
  6. AMBIEN [Concomitant]
     Active Substance: ZOLPIDEM TARTRATE
  7. ISOTRETINOIN. [Concomitant]
     Active Substance: ISOTRETINOIN

REACTIONS (7)
  - Eye irritation [Unknown]
  - Product dose omission issue [Unknown]
  - Swelling of eyelid [Unknown]
  - Eye pain [Unknown]
  - Visual impairment [Unknown]
  - Eye swelling [Unknown]
  - Product use issue [Unknown]
